FAERS Safety Report 4834632-3 (Version None)
Quarter: 2005Q4

REPORT INFORMATION
  Report Type: 
  Country: None (occurrence: None)
  Receive Date: 20051122
  Receipt Date: 20051115
  Transmission Date: 20060501
  Serious: Yes (Other)
  Sender: FDA-Public Use
  Company Number: US-GLAXOSMITHKLINE-A0582431A

PATIENT
  Age: 77 Year
  Sex: Female

DRUGS (4)
  1. FLONASE [Suspect]
     Route: 045
  2. ASTELIN [Concomitant]
  3. COLCHICINE [Concomitant]
  4. LEVOTHYROXINE SODIUM [Concomitant]

REACTIONS (2)
  - EPISTAXIS [None]
  - PHARYNGEAL HAEMORRHAGE [None]
